FAERS Safety Report 14531548 (Version 1)
Quarter: 2018Q1

REPORT INFORMATION
  Report Type: Spontaneous
  Country: US (occurrence: US)
  Receive Date: 20180214
  Receipt Date: 20180214
  Transmission Date: 20180509
  Serious: No
  Sender: FDA-Public Use
  Company Number: US-BIOMARINAP-US-2018-116934

PATIENT
  Sex: Male
  Weight: 90.7 kg

DRUGS (1)
  1. KUVAN [Suspect]
     Active Substance: SAPROPTERIN DIHYDROCHLORIDE
     Indication: TETRAHYDROBIOPTERIN DEFICIENCY
     Dosage: 400 MG, UNK
     Route: 065

REACTIONS (6)
  - Agitation [Unknown]
  - Chest pain [Unknown]
  - Poor peripheral circulation [Unknown]
  - Oedema [Unknown]
  - Hypoaesthesia [Unknown]
  - Logorrhoea [Unknown]
